FAERS Safety Report 18657725 (Version 2)
Quarter: 2022Q4

REPORT INFORMATION
  Report Type: Report from Study
  Country: FR (occurrence: FR)
  Receive Date: 20201223
  Receipt Date: 20221121
  Transmission Date: 20230112
  Serious: Yes (Death, Other)
  Sender: FDA-Public Use
  Company Number: FR-BRISTOL-MYERS SQUIBB COMPANY-BMS-2020-110165

PATIENT
  Age: 66 Year
  Sex: Male

DRUGS (1)
  1. NIVOLUMAB [Suspect]
     Active Substance: NIVOLUMAB
     Indication: Product used for unknown indication
     Dosage: OPDIVO 100 MG AAV5277?OPDIVO 40 MG AAV 0499?OPDIVO 40 MG AAV 9805
     Route: 065
     Dates: start: 20180309, end: 20180309

REACTIONS (1)
  - Malignant neoplasm progression [Fatal]

NARRATIVE: CASE EVENT DATE: 20181123
